FAERS Safety Report 16370254 (Version 1)
Quarter: 2019Q2

REPORT INFORMATION
  Report Type: Spontaneous
  Country: US (occurrence: US)
  Receive Date: 20190530
  Receipt Date: 20190530
  Transmission Date: 20190711
  Serious: No
  Sender: FDA-Public Use
  Company Number: US-HETERO CORPORATE-HET2019US00729

PATIENT

DRUGS (1)
  1. IRBESARTAN. [Suspect]
     Active Substance: IRBESARTAN
     Indication: HYPERTENSION
     Dosage: 300 MG
     Route: 065
     Dates: start: 20190309

REACTIONS (5)
  - Feeling abnormal [Unknown]
  - Hypertension [Unknown]
  - Migraine [Unknown]
  - Irritability [Unknown]
  - Nervousness [Unknown]
